FAERS Safety Report 4871077-4 (Version None)
Quarter: 2005Q4

REPORT INFORMATION
  Report Type: 
  Country: None (occurrence: None)
  Receive Date: 20051115
  Receipt Date: 20050829
  Transmission Date: 20060501
  Serious: No
  Sender: FDA-Public Use
  Company Number: 408734

PATIENT
  Age: 47 Year
  Sex: Female
  Weight: 59 kg

DRUGS (17)
  1. PEGASYS [Suspect]
     Indication: HEPATITIS C
     Dosage: 180 MCG 1 PER WEEK SUBCUTANEOUS
     Route: 058
     Dates: start: 20050321
  2. COPEGUS [Suspect]
     Indication: HEPATITIS C
     Dosage: 400 MG 2 PER 1 DAY ORAL
     Route: 048
     Dates: start: 20050321
  3. SUSTIVA [Concomitant]
  4. TRUVADA [Concomitant]
  5. PAXIL [Concomitant]
  6. AMBIEN [Concomitant]
  7. JUVEN (ARGININE/BETA-HYDROXY-BETA-METHYLBUTYRATE/LEVOGLUTAMIDE) [Concomitant]
  8. CALCIUM (CALCIUM) [Concomitant]
  9. CLINDAMYCIN [Concomitant]
  10. DARAPRIM [Concomitant]
  11. LEUCOVORIN CALCIUM [Concomitant]
  12. ELAVIL [Concomitant]
  13. HYDROCODONE (HYDROCODONE BITARTRATE) [Concomitant]
  14. MARINOL (ALGAE/CALCIUM PHOSPHATE, MONOBASIC/IODINE NOS/PHOSPHORIC ACID [Concomitant]
  15. PROTONIX [Concomitant]
  16. PROTOPIC [Concomitant]
  17. SOMA [Concomitant]

REACTIONS (1)
  - NEUTROPENIA [None]
